FAERS Safety Report 11050842 (Version 1)
Quarter: 2015Q2

REPORT INFORMATION
  Report Type: Spontaneous
  Country: US (occurrence: US)
  Receive Date: 20150421
  Receipt Date: 20150421
  Transmission Date: 20150821
  Serious: Yes (Other)
  Sender: FDA-Public Use
  Company Number: US-BAYER-2015-151837

PATIENT
  Age: 25 Year
  Sex: Female

DRUGS (1)
  1. MIRENA [Suspect]
     Active Substance: LEVONORGESTREL
     Indication: CONTRACEPTION
     Dosage: 20 MCG/24HR, CONT
     Route: 015
     Dates: start: 2012

REACTIONS (5)
  - Nausea [None]
  - Dyspareunia [None]
  - Abdominal pain upper [Not Recovered/Not Resolved]
  - Device dislocation [None]
  - Fatigue [None]

NARRATIVE: CASE EVENT DATE: 2012
